FAERS Safety Report 5950577-X (Version None)
Quarter: 2008Q4

REPORT INFORMATION
  Report Type: 
  Country: None (occurrence: None)
  Receive Date: 20081112
  Receipt Date: 20081029
  Transmission Date: 20090506
  Serious: Yes (Hospitalization, Other)
  Sender: FDA-Public Use
  Company Number: US-ELI_LILLY_AND_COMPANY-US200807005214

PATIENT
  Sex: Female

DRUGS (7)
  1. FORTEO [Suspect]
     Indication: OSTEOPOROSIS
     Dosage: 20 UG, DAILY (1/D)
     Dates: start: 20071101
  2. FORTEO [Suspect]
     Dosage: 20 UG, DAILY (1/D)
  3. LIPITOR [Concomitant]
     Indication: BLOOD CHOLESTEROL INCREASED
  4. ASPIRIN [Concomitant]
     Indication: BLOOD CHOLESTEROL INCREASED
     Dosage: 325 MG, UNK
  5. SPIRIVA [Concomitant]
     Indication: EMPHYSEMA
  6. ATENOLOL [Concomitant]
  7. CALCIUM [Concomitant]

REACTIONS (5)
  - AORTIC ANEURYSM [None]
  - ARTERIOSCLEROSIS [None]
  - CHRONIC OBSTRUCTIVE PULMONARY DISEASE [None]
  - FLUID RETENTION [None]
  - MUSCULAR WEAKNESS [None]
